FAERS Safety Report 8999995 (Version 1)
Quarter: 2013Q1

REPORT INFORMATION
  Report Type: Spontaneous
  Country: GB (occurrence: GB)
  Receive Date: 20130102
  Receipt Date: 20130102
  Transmission Date: 20140127
  Serious: Yes (Hospitalization)
  Sender: FDA-Public Use
  Company Number: GB-SANOFI-AVENTIS-2012SA094082

PATIENT
  Age: 63 Year
  Sex: Male

DRUGS (26)
  1. CLOPIDOGREL BISULFATE [Suspect]
     Indication: PERIPHERAL VASCULAR DISORDER
     Dosage: DOSE: 75?IN MORNING
     Route: 065
     Dates: end: 20121207
  2. DALTEPARIN [Suspect]
     Indication: THROMBOSIS PROPHYLAXIS
     Dosage: DOSE: 5000
     Route: 065
  3. AMITRIPTYLINE [Concomitant]
     Dosage: DOSE: 10?AT NIGHT
  4. ATORVASTATIN [Concomitant]
     Dosage: DOSE: 20?AT NIGHT
  5. CIPROFLOXACIN [Concomitant]
     Indication: CELLULITIS
     Dosage: DOSE: 500
     Dates: start: 20121206
  6. CLINDAMYCIN [Concomitant]
     Indication: CELLULITIS
     Dosage: DOSE: 450?CUMULATIVE DOSE: 1800
     Dates: start: 20121206
  7. CODEINE [Concomitant]
     Dosage: 30-60MG
  8. TILDIEM LA [Concomitant]
     Dosage: DOSE: 1?SANOFI
  9. FUROSEMIDE [Concomitant]
     Indication: PULMONARY OEDEMA
     Dosage: DOSE: 20?IN THE MORNING?DOSE WAS INCREASED TO 40MG OM FOR 2 DAYS
     Dates: start: 20121130
  10. FUROSEMIDE [Concomitant]
     Indication: PULMONARY OEDEMA
     Dosage: DOSE: 40?IN THE MORNING?DOSE DROPPED BACK TO 20MG ON 6/12
  11. LACTULOSE [Concomitant]
     Dosage: DOSE: 10
  12. LANSOPRAZOLE [Concomitant]
     Dosage: DOSE: 30?IN MORNING
  13. METFORMIN [Concomitant]
     Dosage: DOSE: 500?IN MORNING
  14. NOVOMIX [Concomitant]
     Dosage: 100UNITS/ML SUSPENSION FOR INJECTION 3ML PRE-FILLED
  15. MULTIVITAMINS [Concomitant]
     Dosage: DOSE: 1?KENT PHARMACEUTICALS LTD
  16. PARACETAMOL [Concomitant]
     Dosage: DOSE: 1
  17. PERINDOPRIL [Concomitant]
     Dosage: DOSE: 4?IN MORNING
  18. TAMSULOSIN [Concomitant]
     Dosage: DOSE: 400?IN MORNING
  19. THIAMINE [Concomitant]
     Dosage: DOSE: 100
  20. TIOTROPIUM [Concomitant]
     Dosage: DOSE: 18 ?IN MORNING?INHALED
  21. RABEPRAZOLE SODIUM [Concomitant]
     Dosage: DOSE: 1
  22. TRAMADOL [Concomitant]
     Dosage: 50-100MG AS NECESSARY
  23. MORPHINE [Concomitant]
     Dosage: 5-10MG?DOSE: 10
  24. MEROPENEM [Concomitant]
     Dosage: DOSE: 500?CUMULATIVE DOSE: 27000
     Dates: start: 20121110, end: 20121117
  25. TEICOPLANIN [Concomitant]
     Indication: ENDOCARDITIS
     Dosage: DOSE: 800?CUMULATIVE DOSE: 4800?PREVIOUS COURSE 10/11 - 17/11 TOO
     Dates: start: 20121201, end: 20121205
  26. GENTAMICIN [Concomitant]
     Indication: ENDOCARDITIS
     Dosage: DOSE WAS INCREASED TO 40MG IN THE MORNING FOR 2 DAYS, BUT DROPPED BACK TO 20MG ON 6/12?DOSE: 40

REACTIONS (3)
  - Infrequent bowel movements [Unknown]
  - Haematemesis [Recovered/Resolved]
  - Vomiting [Unknown]
